FAERS Safety Report 19129836 (Version 2)
Quarter: 2021Q3

REPORT INFORMATION
  Report Type: Spontaneous
  Country: CA (occurrence: CA)
  Receive Date: 20210413
  Receipt Date: 20210727
  Transmission Date: 20211014
  Serious: Yes (Other)
  Sender: FDA-Public Use
  Company Number: CA-COLGATE PALMOLIVE COMPANY-20210300821

PATIENT
  Sex: Female
  Weight: 97 kg

DRUGS (34)
  1. CIMZIA [Suspect]
     Active Substance: CERTOLIZUMAB PEGOL
     Dosage: 400 MILLIGRAM, 2 WEEK
     Route: 058
  2. OXYCODONE HYDROCHLORIDE. [Suspect]
     Active Substance: OXYCODONE HYDROCHLORIDE
     Indication: PRODUCT USED FOR UNKNOWN INDICATION
     Route: 065
  3. CHOLECALCIFEROL [Concomitant]
     Active Substance: CHOLECALCIFEROL
  4. PLAQUENIL [Concomitant]
     Active Substance: HYDROXYCHLOROQUINE SULFATE
     Route: 065
  5. DESOGESTREL;ETHINYLESTRADIOL [Concomitant]
     Active Substance: DESOGESTREL\ETHINYL ESTRADIOL
  6. TYLENOL [Concomitant]
     Active Substance: ACETAMINOPHEN
  7. PANTOLOC [PANTOPRAZOLE SODIUM SESQUIHYDRATE] [Concomitant]
     Active Substance: PANTOPRAZOLE SODIUM
  8. IBUPROFEN. [Concomitant]
     Active Substance: IBUPROFEN
  9. ACTEMRA [Suspect]
     Active Substance: TOCILIZUMAB
     Indication: RHEUMATOID ARTHRITIS
     Route: 042
  10. ASCORBIC ACID. [Concomitant]
     Active Substance: ASCORBIC ACID
  11. MARVELON [Concomitant]
     Active Substance: DESOGESTREL\ETHINYL ESTRADIOL
  12. ORENCIA [Suspect]
     Active Substance: ABATACEPT
     Indication: PRODUCT USED FOR UNKNOWN INDICATION
     Route: 065
  13. SULFAMETHOXAZOLE AND TRIMETHOPRIM [Suspect]
     Active Substance: SULFAMETHOXAZOLE\TRIMETHOPRIM
     Indication: PRODUCT USED FOR UNKNOWN INDICATION
     Route: 065
  14. PREDNISONE. [Concomitant]
     Active Substance: PREDNISONE
  15. PANTOPRAZOLE [Concomitant]
     Active Substance: PANTOPRAZOLE
  16. OXYCODONE TEREPHTHALATE [Suspect]
     Active Substance: OXYCODONE TEREPHTHALATE
     Indication: PRODUCT USED FOR UNKNOWN INDICATION
     Route: 065
  17. CIMZIA [Suspect]
     Active Substance: CERTOLIZUMAB PEGOL
     Dosage: 400 MILLIGRAM
     Route: 058
  18. ENBREL [Suspect]
     Active Substance: ETANERCEPT
     Indication: RHEUMATOID ARTHRITIS
     Route: 058
  19. FISH OIL [Concomitant]
     Active Substance: FISH OIL
  20. METHOTREXATE. [Suspect]
     Active Substance: METHOTREXATE
     Indication: PRODUCT USED FOR UNKNOWN INDICATION
     Route: 065
  21. CIMZIA [Suspect]
     Active Substance: CERTOLIZUMAB PEGOL
     Dosage: 200 MILLIGRAM, 2 WEEK
     Route: 058
  22. ONE ALPHA [Concomitant]
     Active Substance: ALFACALCIDOL
  23. UBIDECARENONE. [Concomitant]
     Active Substance: UBIDECARENONE
  24. PERIOGARD [Suspect]
     Active Substance: CHLORHEXIDINE GLUCONATE
     Indication: PRODUCT USED FOR UNKNOWN INDICATION
     Route: 002
  25. SIMPONI [Suspect]
     Active Substance: GOLIMUMAB
     Indication: PRODUCT USED FOR UNKNOWN INDICATION
     Route: 058
  26. CHLORAPREP ONE?STEP [Suspect]
     Active Substance: CHLORHEXIDINE GLUCONATE\ISOPROPYL ALCOHOL
     Indication: PRODUCT USED FOR UNKNOWN INDICATION
     Route: 061
  27. LEFLUNOMIDE. [Suspect]
     Active Substance: LEFLUNOMIDE
     Indication: PRODUCT USED FOR UNKNOWN INDICATION
     Route: 065
  28. VENTOLINE [SALBUTAMOL] [Concomitant]
     Active Substance: ALBUTEROL SULFATE
  29. ZOPICLONE [Concomitant]
     Active Substance: ZOPICLONE
  30. CHLORHEXIDINE UNSPECIFIED [Suspect]
     Active Substance: CHLORHEXIDINE
     Indication: PRODUCT USED FOR UNKNOWN INDICATION
     Route: 065
  31. CIMZIA [Suspect]
     Active Substance: CERTOLIZUMAB PEGOL
     Indication: PRODUCT USED FOR UNKNOWN INDICATION
     Dosage: UNK
     Route: 058
  32. ACETAMINOPHEN. [Suspect]
     Active Substance: ACETAMINOPHEN
     Indication: PRODUCT USED FOR UNKNOWN INDICATION
     Route: 065
  33. OXYCODONE [Suspect]
     Active Substance: OXYCODONE
     Indication: PRODUCT USED FOR UNKNOWN INDICATION
     Route: 065
  34. ARAVA [Concomitant]
     Active Substance: LEFLUNOMIDE

REACTIONS (42)
  - Muscle spasticity [Unknown]
  - Joint swelling [Unknown]
  - Urticaria [Unknown]
  - Drug ineffective [Unknown]
  - Hypersensitivity [Not Recovered/Not Resolved]
  - Swelling [Not Recovered/Not Resolved]
  - Asthenia [Unknown]
  - Abdominal pain upper [Unknown]
  - Fatigue [Not Recovered/Not Resolved]
  - Peripheral swelling [Unknown]
  - Ear pain [Unknown]
  - Lower respiratory tract infection [Unknown]
  - Stomatitis [Not Recovered/Not Resolved]
  - Contraindicated product administered [Unknown]
  - Gastrointestinal disorder [Not Recovered/Not Resolved]
  - Sleep disorder due to general medical condition, insomnia type [Not Recovered/Not Resolved]
  - Respiratory disorder [Unknown]
  - Rash [Unknown]
  - Body temperature increased [Unknown]
  - Impaired healing [Not Recovered/Not Resolved]
  - Nasopharyngitis [Not Recovered/Not Resolved]
  - Irritable bowel syndrome [Not Recovered/Not Resolved]
  - Dyspnoea [Not Recovered/Not Resolved]
  - Blister [Not Recovered/Not Resolved]
  - Night sweats [Unknown]
  - Insomnia [Unknown]
  - Back pain [Unknown]
  - Ill-defined disorder [Not Recovered/Not Resolved]
  - Muscle injury [Not Recovered/Not Resolved]
  - Infection [Not Recovered/Not Resolved]
  - Confusional state [Not Recovered/Not Resolved]
  - Pruritus [Unknown]
  - Headache [Unknown]
  - Vomiting [Unknown]
  - Arthralgia [Not Recovered/Not Resolved]
  - Weight increased [Not Recovered/Not Resolved]
  - Sinusitis [Unknown]
  - Folliculitis [Not Recovered/Not Resolved]
  - Diarrhoea [Unknown]
  - Pain [Unknown]
  - Therapeutic product effect decreased [Not Recovered/Not Resolved]
  - Pyrexia [Not Recovered/Not Resolved]
